FAERS Safety Report 14077355 (Version 1)
Quarter: 2017Q4

REPORT INFORMATION
  Report Type: Report from Study
  Country: US (occurrence: US)
  Receive Date: 20171012
  Receipt Date: 20171012
  Transmission Date: 20180321
  Serious: Yes (Other)
  Sender: FDA-Public Use
  Company Number: US-ROCHE-2005810

PATIENT
  Sex: Female
  Weight: 97.61 kg

DRUGS (4)
  1. XOLAIR [Suspect]
     Active Substance: OMALIZUMAB
     Indication: ANAPHYLACTIC REACTION
     Dosage: EVERY TWO WEEKS ;ONGOING: YES
     Route: 058
     Dates: start: 201708
  2. XOLAIR [Suspect]
     Active Substance: OMALIZUMAB
     Route: 058
     Dates: start: 201708
  3. PREDNISONE. [Suspect]
     Active Substance: PREDNISONE
     Indication: PRODUCT USED FOR UNKNOWN INDICATION
     Route: 065
  4. XOLAIR [Suspect]
     Active Substance: OMALIZUMAB
     Indication: ASTHMA
     Dosage: THREE VIALS (150MG EACH) EVERY 10 DAYS ;ONGOING: NO
     Route: 058
     Dates: end: 201708

REACTIONS (5)
  - Left ventricular failure [Recovered/Resolved]
  - Weight increased [Not Recovered/Not Resolved]
  - Cushing^s syndrome [Unknown]
  - Asthma [Not Recovered/Not Resolved]
  - Pulmonary hypertension [Recovered/Resolved]
